FAERS Safety Report 10063478 (Version 5)
Quarter: 2014Q2

REPORT INFORMATION
  Report Type: Report from Study
  Country: TR (occurrence: TR)
  Receive Date: 20140407
  Receipt Date: 20140625
  Transmission Date: 20141212
  Serious: Yes (Other)
  Sender: FDA-Public Use
  Company Number: TR-US-EMD SERONO, INC.-7280811

PATIENT
  Sex: Female

DRUGS (3)
  1. REBIF [Suspect]
     Indication: MULTIPLE SCLEROSIS
     Dates: start: 2000
  2. BRUFEN                             /00109201/ [Concomitant]
     Indication: PRODUCT USED FOR UNKNOWN INDICATION
  3. FLURBIPROFEN [Concomitant]
     Indication: PRODUCT USED FOR UNKNOWN INDICATION

REACTIONS (1)
  - Uterine cyst [Not Recovered/Not Resolved]
